FAERS Safety Report 12522750 (Version 1)
Quarter: 2016Q3

REPORT INFORMATION
  Report Type: Spontaneous
  Country: US (occurrence: US)
  Receive Date: 20160701
  Receipt Date: 20160701
  Transmission Date: 20161109
  Serious: No
  Sender: FDA-Public Use
  Company Number: US-GLAXOSMITHKLINE-US2016092641

PATIENT
  Sex: Male

DRUGS (2)
  1. FLONASE [Suspect]
     Active Substance: FLUTICASONE PROPIONATE
     Dosage: UNK
     Dates: start: 1966
  2. FLONASE [Suspect]
     Active Substance: FLUTICASONE PROPIONATE
     Indication: EAR PAIN
     Dosage: UNK
     Dates: start: 20160620, end: 20160627

REACTIONS (9)
  - Skin haemorrhage [Unknown]
  - Off label use [Unknown]
  - Hypersensitivity [Not Recovered/Not Resolved]
  - Ear swelling [Not Recovered/Not Resolved]
  - Ear haemorrhage [Not Recovered/Not Resolved]
  - Therapeutic response unexpected [Unknown]
  - Rash [Not Recovered/Not Resolved]
  - Urticaria [Not Recovered/Not Resolved]
  - Musculoskeletal stiffness [Unknown]

NARRATIVE: CASE EVENT DATE: 20160626
